FAERS Safety Report 12746277 (Version 1)
Quarter: 2016Q3

REPORT INFORMATION
  Report Type: Spontaneous
  Country: US (occurrence: US)
  Receive Date: 20160915
  Receipt Date: 20160915
  Transmission Date: 20161109
  Serious: Yes (Disabling)
  Sender: FDA-Public Use
  Company Number: None

PATIENT
  Age: 41 Year
  Sex: Female
  Weight: 69.75 kg

DRUGS (4)
  1. DEPO-PROVERA [Suspect]
     Active Substance: MEDROXYPROGESTERONE ACETATE
     Indication: CONTRACEPTION
     Dosage: OTHER STRENGTH:;OTHER DOSE:;OTHER FREQUENCY:3 MONTHS;OTHER ROUTE:
     Route: 058
  2. TAMOXIFEN [Concomitant]
     Active Substance: TAMOXIFEN
  3. ADVIL [Concomitant]
     Active Substance: IBUPROFEN
  4. WATER PILLS [Concomitant]
     Active Substance: UNSPECIFIED INGREDIENT

REACTIONS (1)
  - Breast cancer metastatic [None]

NARRATIVE: CASE EVENT DATE: 20160707
